FAERS Safety Report 24545892 (Version 1)
Quarter: 2024Q4

REPORT INFORMATION
  Report Type: Spontaneous
  Country: GB (occurrence: GB)
  Receive Date: 20241024
  Receipt Date: 20241024
  Transmission Date: 20250115
  Serious: Yes (Other)
  Sender: VERTEX
  Company Number: GB-VERTEX PHARMACEUTICALS-2024-016732

PATIENT
  Age: 22 Year
  Sex: Female

DRUGS (3)
  1. ELEXACAFTOR\IVACAFTOR\TEZACAFTOR [Suspect]
     Active Substance: ELEXACAFTOR\IVACAFTOR\TEZACAFTOR
     Indication: Cystic fibrosis
     Dosage: UNK
     Route: 048
     Dates: end: 202011
  2. ELEXACAFTOR\IVACAFTOR\TEZACAFTOR [Suspect]
     Active Substance: ELEXACAFTOR\IVACAFTOR\TEZACAFTOR
     Dosage: UNK
     Route: 048
     Dates: start: 202204
  3. ELEXACAFTOR\IVACAFTOR\TEZACAFTOR [Suspect]
     Active Substance: ELEXACAFTOR\IVACAFTOR\TEZACAFTOR
     Dosage: TWICE A WEEK
     Route: 048

REACTIONS (10)
  - Suicidal ideation [Recovering/Resolving]
  - Productive cough [Recovering/Resolving]
  - Fatigue [Unknown]
  - Dissociation [Unknown]
  - Weight increased [Unknown]
  - Body dysmorphic disorder [Unknown]
  - Sleep deficit [Unknown]
  - Feeling guilty [Unknown]
  - Depression [Recovering/Resolving]
  - Depressed mood [Recovering/Resolving]
